FAERS Safety Report 5993326-1 (Version None)
Quarter: 2008Q4

REPORT INFORMATION
  Report Type: 
  Country: None (occurrence: None)
  Receive Date: 20081212
  Receipt Date: 20081210
  Transmission Date: 20090506
  Serious: Yes (Death)
  Sender: FDA-Public Use
  Company Number: US-ASTRAZENECA-2008AC03135

PATIENT
  Age: 25 Year
  Sex: Male

DRUGS (5)
  1. PROPOFOL [Suspect]
     Indication: INTRACRANIAL PRESSURE INCREASED
     Dosage: DAY 1-3, DOSE RANGED FROM 30-134 UG/KG/MIN, INTERRUPTED FOR 36HR ON DAYS 4 + 5
     Route: 042
  2. PROPOFOL [Suspect]
     Dosage: DAY 6-7, DOSE RANGED FROM 30-134 UG/KG/MIN, INTERRUPTED FOR 36HR ON DAYS 4 + 5
     Route: 042
  3. PHENYLEPHRINE [Suspect]
     Indication: CEREBRAL HYPOPERFUSION
     Dosage: DOSE RANGED FROM 0.04-7.6 UG/KG/MIN
     Route: 042
  4. PENTOBARBITAL CAP [Concomitant]
     Route: 042
  5. THIOPENTAL SODIUM [Concomitant]
     Indication: CSF PRESSURE
     Dosage: 100-200 MG, 2.7 GRAMS OVER 5 DAY PERIOD
     Route: 040

REACTIONS (4)
  - BLOOD CREATINE PHOSPHOKINASE INCREASED [None]
  - ELECTROCARDIOGRAM T WAVE INVERSION [None]
  - METABOLIC ACIDOSIS [None]
  - PROPOFOL INFUSION SYNDROME [None]
